FAERS Safety Report 8467776-8 (Version None)
Quarter: 2012Q2

REPORT INFORMATION
  Report Type: 
  Country: None (occurrence: None)
  Receive Date: 20120626
  Receipt Date: 20120619
  Transmission Date: 20120825
  Serious: Yes (Other)
  Sender: FDA-Public Use
  Company Number: US-CELGENEUS-163-21880-12052895

PATIENT
  Sex: Male
  Weight: 88.984 kg

DRUGS (7)
  1. ACYCLOVIR [Concomitant]
     Route: 065
  2. NEXIUM [Concomitant]
     Route: 065
  3. ALLOPURINOL [Concomitant]
     Route: 065
  4. HYDROCHLOROTHIAZIDE [Concomitant]
     Route: 065
  5. REVLIMID [Suspect]
     Indication: MULTIPLE MYELOMA
     Dosage: 10 MILLIGRAM
     Route: 048
     Dates: start: 20111011
  6. AMLODIPINE [Concomitant]
     Route: 065
  7. REGLAN [Concomitant]
     Route: 065

REACTIONS (5)
  - HAEMOPTYSIS [None]
  - OEDEMA PERIPHERAL [None]
  - PRURITUS [None]
  - PULMONARY THROMBOSIS [None]
  - HYPOAESTHESIA [None]
